FAERS Safety Report 9364106 (Version 1)
Quarter: 2013Q2

REPORT INFORMATION
  Report Type: Spontaneous
  Country: US (occurrence: US)
  Receive Date: 20130624
  Receipt Date: 20130624
  Transmission Date: 20140414
  Serious: No
  Sender: FDA-Public Use
  Company Number: US-009507513-1306USA010358

PATIENT
  Sex: 0

DRUGS (6)
  1. JANUVIA [Suspect]
     Dosage: UNKNOWN
  2. GLIMEPIRIDE [Concomitant]
  3. METFORMIN [Concomitant]
  4. NOVOLOG [Concomitant]
     Dosage: FLEXPEN
  5. LEVEMIR [Concomitant]
     Dosage: UNKNOWN
  6. ACTOS [Concomitant]
     Dosage: UNKNOWN

REACTIONS (1)
  - Blood glucose increased [Unknown]
